FAERS Safety Report 5397731-6 (Version None)
Quarter: 2007Q3

REPORT INFORMATION
  Report Type: 
  Country: None (occurrence: None)
  Receive Date: 20070723
  Receipt Date: 20070712
  Transmission Date: 20080115
  Serious: Yes (Hospitalization)
  Sender: FDA-Public Use
  Company Number: GXKR2007IE06028

PATIENT
  Age: 76 Year
  Sex: Male

DRUGS (13)
  1. TRADOL (NGX)(TRAMADOL) CAPSULE, 50MG [Suspect]
     Indication: PAIN
     Dosage: 50 MG, BID, ORAL
     Route: 048
     Dates: start: 20070613, end: 20070620
  2. DIAMICRON (GLICLAZIDE) [Concomitant]
  3. FUROSEMIDE [Concomitant]
  4. DOMPERIDONE (DOMPERIDONE) [Concomitant]
  5. GLUCOPHAGE [Concomitant]
  6. PERINDOPRIL ERBUMINE [Concomitant]
  7. AMLODIPINE BESYLATE [Concomitant]
  8. SERC [Concomitant]
  9. NU-SEALS ASPIRIN (ACETYLSALICYLIC ACID) [Concomitant]
  10. OMEPRAZOLE [Concomitant]
  11. ARICEPT [Concomitant]
  12. ATORVASTATIN CALCIUM [Concomitant]
  13. ALFUZOSIN (ALFUZOSIN) [Concomitant]

REACTIONS (4)
  - DIZZINESS [None]
  - HEADACHE [None]
  - MYALGIA [None]
  - SOMNOLENCE [None]
